FAERS Safety Report 23223755 (Version 4)
Quarter: 2024Q1

REPORT INFORMATION
  Report Type: Report from Study
  Country: US (occurrence: US)
  Receive Date: 20231124
  Receipt Date: 20240202
  Transmission Date: 20240410
  Serious: Yes (Hospitalization, Other)
  Sender: FDA-Public Use
  Company Number: US-ABBVIE-5505431

PATIENT
  Sex: Male

DRUGS (5)
  1. IMBRUVICA [Suspect]
     Active Substance: IBRUTINIB
     Indication: Chronic lymphocytic leukaemia
     Route: 048
     Dates: start: 201510
  2. IMBRUVICA [Suspect]
     Active Substance: IBRUTINIB
     Indication: Chronic lymphocytic leukaemia
     Dosage: LAST ADMIN DATE: 2015
     Route: 048
     Dates: start: 201509
  3. IMBRUVICA [Suspect]
     Active Substance: IBRUTINIB
     Indication: Chronic lymphocytic leukaemia
     Route: 048
     Dates: start: 201810, end: 202311
  4. IMBRUVICA [Suspect]
     Active Substance: IBRUTINIB
     Indication: Chronic lymphocytic leukaemia
     Route: 048
     Dates: start: 202311
  5. CEPHALEXIN [Suspect]
     Active Substance: CEPHALEXIN
     Indication: Product used for unknown indication
     Route: 048
     Dates: start: 2023, end: 2023

REACTIONS (9)
  - Medical device implantation [Unknown]
  - Localised infection [Unknown]
  - Drug hypersensitivity [Unknown]
  - Dry skin [Unknown]
  - Peripheral swelling [Unknown]
  - Pruritus [Unknown]
  - Dry mouth [Unknown]
  - Muscular weakness [Unknown]
  - Nervousness [Unknown]

NARRATIVE: CASE EVENT DATE: 20230101
